FAERS Safety Report 15046529 (Version 2)
Quarter: 2018Q4

REPORT INFORMATION
  Report Type: Spontaneous
  Country: US (occurrence: US)
  Receive Date: 20180621
  Receipt Date: 20181217
  Transmission Date: 20190204
  Serious: Yes (Disabling, Other)
  Sender: FDA-Public Use
  Company Number: US-OTSUKA-2018_015694

PATIENT
  Age: 26 Year
  Sex: Female

DRUGS (14)
  1. ABILIFY [Suspect]
     Active Substance: ARIPIPRAZOLE
     Dosage: 30 MG, QD
     Route: 065
     Dates: end: 201706
  2. TEGRETOL [Concomitant]
     Active Substance: CARBAMAZEPINE
     Indication: BIPOLAR DISORDER
     Dosage: 1600 MG, QD
     Route: 065
  3. BUPROPION. [Concomitant]
     Active Substance: BUPROPION
     Indication: PRODUCT USED FOR UNKNOWN INDICATION
     Dosage: UNK
     Route: 065
  4. LAMOTRIGINE. [Concomitant]
     Active Substance: LAMOTRIGINE
     Indication: PRODUCT USED FOR UNKNOWN INDICATION
     Dosage: UNK
     Route: 065
  5. CELEXA [Concomitant]
     Active Substance: CITALOPRAM HYDROBROMIDE
     Indication: AFFECTIVE DISORDER
     Dosage: 40 MG, QD
     Route: 065
  6. ARIPIPRAZOLE. [Concomitant]
     Active Substance: ARIPIPRAZOLE
     Indication: PRODUCT USED FOR UNKNOWN INDICATION
     Dosage: UNK
     Route: 065
     Dates: start: 20170406, end: 20170608
  7. CITALOPRAM [Concomitant]
     Active Substance: CITALOPRAM HYDROBROMIDE
     Indication: PRODUCT USED FOR UNKNOWN INDICATION
     Dosage: UNK
     Route: 065
  8. RANITIDINE. [Concomitant]
     Active Substance: RANITIDINE
     Indication: PRODUCT USED FOR UNKNOWN INDICATION
     Dosage: UNK
     Route: 065
  9. LAMICTAL [Concomitant]
     Active Substance: LAMOTRIGINE
     Indication: BIPOLAR DISORDER
     Dosage: 500 MG, QD
     Route: 065
  10. ABILIFY [Suspect]
     Active Substance: ARIPIPRAZOLE
     Indication: BIPOLAR DISORDER
     Dosage: 5 MG, QD
     Route: 065
     Dates: start: 201201
  11. VOLTA [Concomitant]
     Indication: PRODUCT USED FOR UNKNOWN INDICATION
     Dosage: UNK
     Route: 065
  12. LEXAPRO [Concomitant]
     Active Substance: ESCITALOPRAM OXALATE
     Indication: DEPRESSION
     Dosage: UNK
     Route: 065
  13. MICROGESTIN [Concomitant]
     Active Substance: ETHINYL ESTRADIOL\NORETHINDRONE ACETATE
     Indication: PRODUCT USED FOR UNKNOWN INDICATION
     Dosage: UNK
     Route: 065
  14. METOPROLOL. [Concomitant]
     Active Substance: METOPROLOL
     Indication: PRODUCT USED FOR UNKNOWN INDICATION
     Dosage: UNK
     Route: 065

REACTIONS (27)
  - Suicidal ideation [Recovered/Resolved]
  - Emotional distress [Unknown]
  - Economic problem [Unknown]
  - Injury [Unknown]
  - Compulsive shopping [Recovered/Resolved]
  - Pain [Unknown]
  - Substance abuse [Unknown]
  - Disability [Unknown]
  - Suicide attempt [Recovered/Resolved]
  - Bankruptcy [Unknown]
  - Loss of employment [Unknown]
  - Mental impairment [Unknown]
  - Poor quality sleep [Unknown]
  - Anxiety [Unknown]
  - Condition aggravated [Recovered/Resolved]
  - Impulse-control disorder [Unknown]
  - Obsessive-compulsive disorder [Recovered/Resolved]
  - Anhedonia [Unknown]
  - Red blood cell count increased [Unknown]
  - Fatigue [Unknown]
  - Alcohol abuse [Unknown]
  - Fear [Unknown]
  - Social problem [Unknown]
  - Eating disorder [Recovered/Resolved]
  - White blood cell count increased [Unknown]
  - Gambling disorder [Recovered/Resolved]
  - Personal relationship issue [Unknown]

NARRATIVE: CASE EVENT DATE: 2015
